FAERS Safety Report 6007144-1 (Version None)
Quarter: 2008Q4

REPORT INFORMATION
  Report Type: 
  Country: None (occurrence: None)
  Receive Date: 20081217
  Receipt Date: 20071129
  Transmission Date: 20090506
  Serious: Yes (Hospitalization)
  Sender: FDA-Public Use
  Company Number: US-ASTRAZENECA-2008UW01978

PATIENT
  Age: 67 Year
  Sex: Female

DRUGS (13)
  1. CRESTOR [Suspect]
     Route: 048
     Dates: start: 20071112
  2. ZETIA [Suspect]
     Route: 048
  3. GLUCOTROL [Concomitant]
  4. GLUCOPHAGE [Concomitant]
  5. LISINOPRIL [Concomitant]
  6. NEXIUM [Concomitant]
     Route: 048
  7. REQUIP [Concomitant]
  8. PLAVIX [Concomitant]
  9. ZOCOR [Concomitant]
  10. ACTOS [Concomitant]
  11. DARVOCET [Concomitant]
  12. SYNTHROID [Concomitant]
  13. PREVACID [Concomitant]

REACTIONS (2)
  - RENAL FAILURE ACUTE [None]
  - RHABDOMYOLYSIS [None]
